FAERS Safety Report 8428586-0 (Version None)
Quarter: 2012Q2

REPORT INFORMATION
  Report Type: 
  Country: None (occurrence: None)
  Receive Date: 20120606
  Receipt Date: 20120606
  Transmission Date: 20120825
  Serious: Yes (Life-Threatening)
  Sender: FDA-Public Use
  Company Number: None

PATIENT
  Sex: Female
  Weight: 70.3075 kg

DRUGS (3)
  1. SEE ATTACHMENTS [Concomitant]
  2. HYDROCHLOROTHIAZIDE [Suspect]
     Dosage: 12.5 MG 1X DAILY
     Dates: start: 20120407
  3. LISINOPRIL [Suspect]
     Indication: HYPERTENSION
     Dosage: 20 MG. 1X DAILY
     Dates: start: 20120307

REACTIONS (26)
  - DIZZINESS [None]
  - DYSGEUSIA [None]
  - DYSPNOEA [None]
  - COUGH [None]
  - DRY MOUTH [None]
  - PAIN IN EXTREMITY [None]
  - CONTUSION [None]
  - CHROMATURIA [None]
  - CHEST DISCOMFORT [None]
  - NAUSEA [None]
  - DYSPEPSIA [None]
  - FATIGUE [None]
  - HEART RATE INCREASED [None]
  - URINE ODOUR ABNORMAL [None]
  - MALAISE [None]
  - DECREASED APPETITE [None]
  - URTICARIA [None]
  - MUSCLE SPASMS [None]
  - ABDOMINAL PAIN [None]
  - DYSURIA [None]
  - ASTHENIA [None]
  - RESTLESSNESS [None]
  - HEADACHE [None]
  - CHEST PAIN [None]
  - PRURITUS [None]
  - PALPITATIONS [None]
